FAERS Safety Report 23523863 (Version 6)
Quarter: 2024Q1

REPORT INFORMATION
  Report Type: Spontaneous
  Country: US (occurrence: US)
  Receive Date: 20240214
  Receipt Date: 20240321
  Transmission Date: 20240410
  Serious: Yes (Other)
  Sender: FDA-Public Use
  Company Number: US-PFIZER INC-PV202400020914

PATIENT
  Age: 66 Year
  Sex: Female

DRUGS (3)
  1. IBRANCE [Suspect]
     Active Substance: PALBOCICLIB
     Dosage: 125 MG, CYCLIC
  2. IBRANCE [Suspect]
     Active Substance: PALBOCICLIB
     Dosage: 125 MG, CYCLIC (TAKES 4 TABLETS AND THEN ARE OFF FOR 10)
  3. IBRANCE [Suspect]
     Active Substance: PALBOCICLIB
     Dosage: TAKE IBRANCE FOR 4 DAYS ON WEEK 3 (18 DAYS ON) AND THEN TAKE 10 DAYS OFF INSTEAD OF 7

REACTIONS (6)
  - Colitis ulcerative [Unknown]
  - Anaemia [Recovering/Resolving]
  - Fatigue [Unknown]
  - Blood creatinine increased [Unknown]
  - Constipation [Unknown]
  - Pain [Unknown]
